FAERS Safety Report 25379440 (Version 1)
Quarter: 2025Q2

REPORT INFORMATION
  Report Type: Spontaneous
  Country: US (occurrence: None)
  Receive Date: 20250529
  Receipt Date: 20250529
  Transmission Date: 20250716
  Serious: Yes (Other)
  Sender: FDA-CTU
  Company Number: None

PATIENT
  Age: 74 Year
  Sex: Female
  Weight: 107.1 kg

DRUGS (19)
  1. CYANOCOBALAMIN\GLYCINE\SEMAGLUTIDE [Suspect]
     Active Substance: CYANOCOBALAMIN\GLYCINE\SEMAGLUTIDE
     Indication: Weight decreased
     Route: 058
     Dates: start: 20250415, end: 20250422
  2. DEVICE [Concomitant]
     Active Substance: DEVICE
  3. DULOXETINE [Concomitant]
     Active Substance: DULOXETINE
  4. ROSUVASTATIN [Concomitant]
     Active Substance: ROSUVASTATIN
  5. OMIPRAZOLE [Concomitant]
  6. METFORMIN [Concomitant]
     Active Substance: METFORMIN HYDROCHLORIDE
  7. BUPROPION [Concomitant]
     Active Substance: BUPROPION
  8. POTASSIUM [Concomitant]
     Active Substance: POTASSIUM
  9. MELOXICAM [Concomitant]
     Active Substance: MELOXICAM
  10. VITAMINS [Concomitant]
     Active Substance: VITAMINS
  11. VITAMIN D3 [Concomitant]
     Active Substance: CHOLECALCIFEROL
  12. ASPIRIN [Concomitant]
     Active Substance: ASPIRIN
  13. PROBIOTICS NOS [Concomitant]
     Active Substance: PROBIOTICS NOS
  14. MAGNESIUM [Concomitant]
     Active Substance: MAGNESIUM
  15. CALCIUM [Concomitant]
     Active Substance: CALCIUM
  16. PROMEGA [Concomitant]
  17. TYLENOL PM [Concomitant]
     Active Substance: ACETAMINOPHEN\DIPHENHYDRAMINE
  18. UNSPECIFIED INGREDIENT [Concomitant]
     Active Substance: UNSPECIFIED INGREDIENT
  19. DIETARY SUPPLEMENT [Concomitant]
     Active Substance: DIETARY SUPPLEMENT

REACTIONS (10)
  - Depression [None]
  - Panic attack [None]
  - Fatigue [None]
  - Decreased interest [None]
  - Nausea [None]
  - Decreased appetite [None]
  - Dizziness [None]
  - Dizziness postural [None]
  - Tremor [None]
  - Dyspnoea [None]

NARRATIVE: CASE EVENT DATE: 20250415
